FAERS Safety Report 13838195 (Version 1)
Quarter: 2017Q3

REPORT INFORMATION
  Report Type: Spontaneous
  Country: FR (occurrence: FR)
  Receive Date: 20170807
  Receipt Date: 20170807
  Transmission Date: 20171127
  Serious: Yes (Hospitalization, Other)
  Sender: FDA-Public Use
  Company Number: FR-BRISTOL-MYERS SQUIBB COMPANY-BMS-2017-066485

PATIENT
  Sex: Male

DRUGS (2)
  1. COUMADINE [Suspect]
     Active Substance: WARFARIN SODIUM
     Indication: ARRHYTHMIA
     Dosage: UNK
     Route: 048
  2. COUMADINE [Suspect]
     Active Substance: WARFARIN SODIUM
     Indication: ATRIAL FIBRILLATION
     Route: 065

REACTIONS (4)
  - Fall [Unknown]
  - Anaemia [Not Recovered/Not Resolved]
  - Haematoma [Not Recovered/Not Resolved]
  - Gastrointestinal haemorrhage [Recovering/Resolving]
